FAERS Safety Report 5081145-2 (Version None)
Quarter: 2006Q3

REPORT INFORMATION
  Report Type: 
  Country: None (occurrence: None)
  Receive Date: 20060814
  Receipt Date: 20060814
  Transmission Date: 20061208
  Serious: Yes (Other)
  Sender: FDA-Public Use
  Company Number: None

PATIENT
  Age: 38 Year
  Sex: Female
  Weight: 63.9572 kg

DRUGS (1)
  1. PRILOSEC OTC [Suspect]
     Dosage: 20 MG 2X A DAY

REACTIONS (9)
  - ABDOMINAL DISTENSION [None]
  - ABDOMINAL PAIN [None]
  - ADVERSE DRUG REACTION [None]
  - BURNING SENSATION [None]
  - DRUG INEFFECTIVE [None]
  - HEADACHE [None]
  - INSOMNIA [None]
  - NECK PAIN [None]
  - TREATMENT NONCOMPLIANCE [None]
